FAERS Safety Report 7720175-6 (Version None)
Quarter: 2011Q3

REPORT INFORMATION
  Report Type: 
  Country: None (occurrence: None)
  Receive Date: 20110826
  Receipt Date: 20110826
  Transmission Date: 20111222
  Serious: Yes (Other)
  Sender: FDA-Public Use
  Company Number: None

PATIENT
  Age: 69 Year
  Sex: Female
  Weight: 61.2356 kg

DRUGS (1)
  1. EFFEXOR [Suspect]
     Indication: DEPRESSION
     Dosage: 75MG THREE QD PO
     Route: 048
     Dates: start: 20080101

REACTIONS (4)
  - NAUSEA [None]
  - CONDITION AGGRAVATED [None]
  - ANXIETY [None]
  - HEADACHE [None]
